FAERS Safety Report 8002119-5 (Version None)
Quarter: 2011Q4

REPORT INFORMATION
  Report Type: 
  Country: None (occurrence: None)
  Receive Date: 20111222
  Receipt Date: 20111219
  Transmission Date: 20120403
  Serious: Yes (Other)
  Sender: FDA-Public Use
  Company Number: SE-PFIZER INC-2011307480

PATIENT
  Age: 23 Year
  Sex: Male

DRUGS (2)
  1. ALPRAZOLAM [Suspect]
     Dosage: 2MG, UNK
  2. ALPRAZOLAM [Suspect]
     Dosage: 2 MG, 3X/DAY

REACTIONS (4)
  - MANIA [None]
  - CONDITION AGGRAVATED [None]
  - SUICIDE ATTEMPT [None]
  - COMA [None]
